FAERS Safety Report 15805481 (Version 1)
Quarter: 2019Q1

REPORT INFORMATION
  Report Type: Spontaneous
  Country: US (occurrence: US)
  Receive Date: 20190110
  Receipt Date: 20190110
  Transmission Date: 20190417
  Serious: No
  Sender: FDA-Public Use
  Company Number: US-LEO PHARMA-316129

PATIENT
  Sex: Male

DRUGS (1)
  1. SKINOREN CUTANEOUS FOAM [Suspect]
     Active Substance: AZELAIC ACID
     Indication: ROSACEA
     Route: 061

REACTIONS (2)
  - Wrong technique in product usage process [Unknown]
  - Drug ineffective [Unknown]
